FAERS Safety Report 5399844-1 (Version None)
Quarter: 2007Q3

REPORT INFORMATION
  Report Type: 
  Country: None (occurrence: None)
  Receive Date: 20070730
  Receipt Date: 20070727
  Transmission Date: 20080115
  Serious: Yes (Death, Other)
  Sender: FDA-Public Use
  Company Number: PHNU2007DE02675

PATIENT

DRUGS (9)
  1. AREDIA [Suspect]
     Indication: METASTASES TO BONE
     Route: 042
     Dates: start: 20010401, end: 20051101
  2. ESTRAMUSTINE [Concomitant]
     Dates: start: 20040701, end: 20040901
  3. DECORTIN-H [Concomitant]
     Dosage: 0.5 DF/DAY
     Route: 065
  4. ASPIRIN [Concomitant]
     Route: 065
  5. RAMIPRIL [Concomitant]
     Route: 065
  6. ISOPTIN [Concomitant]
     Route: 065
  7. SPIRONOLACTONE [Concomitant]
     Route: 065
  8. OMEP [Concomitant]
     Route: 065
  9. DIGITOXIN TAB [Concomitant]
     Route: 065

REACTIONS (7)
  - ANTIBIOTIC PROPHYLAXIS [None]
  - ORAL SURGERY [None]
  - OSTEOMYELITIS [None]
  - OSTEONECROSIS [None]
  - PAIN IN JAW [None]
  - PROSTATE CANCER [None]
  - WOUND DEHISCENCE [None]
